FAERS Safety Report 9619684 (Version 4)
Quarter: 2013Q4

REPORT INFORMATION
  Report Type: Spontaneous
  Country: US (occurrence: US)
  Receive Date: 20131014
  Receipt Date: 20131216
  Transmission Date: 20140711
  Serious: No
  Sender: FDA-Public Use
  Company Number: US-009507513-1309USA014092

PATIENT
  Age: 35 Year
  Sex: Female
  Weight: 75.28 kg

DRUGS (1)
  1. NEXPLANON [Suspect]
     Dosage: 68 MG/ONE ROD EVERY THREE YEARS
     Route: 059
     Dates: start: 20130905, end: 20130909

REACTIONS (3)
  - Device expulsion [Recovered/Resolved]
  - Device kink [Recovered/Resolved]
  - No adverse event [Unknown]
